FAERS Safety Report 18109273 (Version 1)
Quarter: 2020Q3

REPORT INFORMATION
  Report Type: Spontaneous
  Country: US (occurrence: US)
  Receive Date: 20200804
  Receipt Date: 20200804
  Transmission Date: 20201103
  Serious: No
  Sender: FDA-Public Use
  Company Number: None

PATIENT
  Age: 61 Year
  Sex: Female
  Weight: 63 kg

DRUGS (4)
  1. COLLAGEN [Concomitant]
     Active Substance: COLLAGEN
  2. SMART CARE HAND SANITIZER [Suspect]
     Active Substance: ALCOHOL
     Indication: COVID-19 PROPHYLAXIS
     Dosage: ?          QUANTITY:2 OUNCE(S);OTHER FREQUENCY:MANY TIMES/DAY;?
     Route: 061
     Dates: start: 20200803, end: 20200803
  3. VITAMINS [Concomitant]
     Active Substance: VITAMINS
  4. BIOTIN [Concomitant]
     Active Substance: BIOTIN

REACTIONS (3)
  - Suspected product quality issue [None]
  - Product odour abnormal [None]
  - Application site pain [None]

NARRATIVE: CASE EVENT DATE: 20200803
